FAERS Safety Report 7012521-6 (Version None)
Quarter: 2010Q3

REPORT INFORMATION
  Report Type: 
  Country: None (occurrence: None)
  Receive Date: 20100922
  Receipt Date: 20100922
  Transmission Date: 20110219
  Serious: Yes (Other)
  Sender: FDA-Public Use
  Company Number: None

PATIENT
  Age: 27 Month
  Sex: Female
  Weight: 16.8 kg

DRUGS (2)
  1. EVAMIST [Suspect]
     Indication: HORMONE REPLACEMENT THERAPY
     Dosage: 2 SPRAYS TO EACH FOREARM BID TOPICAL
     Route: 061
     Dates: start: 20100621
  2. EVAMIST [Suspect]
     Indication: HORMONE REPLACEMENT THERAPY
     Dosage: 2 SPRAYS TO EACH FOREARM BID TOPICAL
     Route: 061
     Dates: start: 20100908

REACTIONS (2)
  - BREAST ENLARGEMENT [None]
  - VAGINAL DISCHARGE [None]
